FAERS Safety Report 8217911-1 (Version None)
Quarter: 2012Q1

REPORT INFORMATION
  Report Type: 
  Country: None (occurrence: None)
  Receive Date: 20120319
  Receipt Date: 20120305
  Transmission Date: 20120608
  Serious: Yes (Life-Threatening, Hospitalization)
  Sender: FDA-Public Use
  Company Number: GB-ELI_LILLY_AND_COMPANY-GB201203001294

PATIENT
  Sex: Male

DRUGS (1)
  1. DULOXETIME HYDROCHLORIDE [Suspect]
     Dosage: 40 MG, BID

REACTIONS (2)
  - CEREBRAL HAEMORRHAGE [None]
  - GASTROINTESTINAL TUBE INSERTION [None]
